FAERS Safety Report 12318312 (Version 2)
Quarter: 2016Q2

REPORT INFORMATION
  Report Type: Spontaneous
  Country: US (occurrence: US)
  Receive Date: 20160429
  Receipt Date: 20160525
  Transmission Date: 20160815
  Serious: No
  Sender: FDA-Public Use
  Company Number: ALCN2016US002821

PATIENT
  Age: 76 Year
  Sex: Female
  Weight: 70.75 kg

DRUGS (4)
  1. PREDNISOLONE ACETATE. [Suspect]
     Active Substance: PREDNISOLONE ACETATE
     Indication: POSTOPERATIVE CARE
     Dosage: 1 GTT, QID
     Route: 047
     Dates: start: 20160323, end: 20160329
  2. GATIFLOXACIN. [Concomitant]
     Active Substance: GATIFLOXACIN
     Indication: POSTOPERATIVE CARE
     Dosage: 1 GTT, QID
     Route: 047
     Dates: start: 20160321, end: 20160330
  3. PREDNISOLONE ACETATE. [Suspect]
     Active Substance: PREDNISOLONE ACETATE
     Dosage: 1 GTT, BID
     Route: 047
     Dates: start: 20160330, end: 20160413
  4. KETOROLAC [Concomitant]
     Active Substance: KETOROLAC\KETOROLAC TROMETHAMINE
     Indication: POSTOPERATIVE CARE
     Dosage: 1 GTT, TID
     Route: 047
     Dates: start: 20160321, end: 20160330

REACTIONS (2)
  - Eye irritation [Recovered/Resolved]
  - Product use issue [Recovered/Resolved]

NARRATIVE: CASE EVENT DATE: 20160323
